FAERS Safety Report 8440564-4 (Version None)
Quarter: 2012Q2

REPORT INFORMATION
  Report Type: 
  Country: None (occurrence: None)
  Receive Date: 20120615
  Receipt Date: 20120604
  Transmission Date: 20120825
  Serious: Yes (Other)
  Sender: FDA-Public Use
  Company Number: BR-AMGEN-BRASP2012035734

PATIENT
  Age: 55 Year
  Sex: Female
  Weight: 72 kg

DRUGS (6)
  1. METHOTREXATE [Concomitant]
     Dosage: UNK
  2. LOTAR                              /02225901/ [Concomitant]
     Dosage: UNK
  3. PREDNISONE TAB [Concomitant]
     Dosage: UNK
  4. ISOPHANE INSULIN [Concomitant]
     Dosage: UNK
  5. ENBREL [Suspect]
     Indication: RHEUMATOID ARTHRITIS
     Dosage: 50 MG, ONCE WEEKLY
     Route: 058
     Dates: start: 20120301
  6. LEUCOVORIN CALCIUM [Concomitant]
     Dosage: UNK

REACTIONS (4)
  - URINARY TRACT INFECTION [None]
  - FALL [None]
  - INFLUENZA [None]
  - ANKLE FRACTURE [None]
